FAERS Safety Report 8576408 (Version 7)
Quarter: 2023Q2

REPORT INFORMATION
  Report Type: Spontaneous
  Country: US (occurrence: US)
  Receive Date: 20120523
  Receipt Date: 20230512
  Transmission Date: 20230721
  Serious: No
  Sender: FDA-Public Use
  Company Number: US-PFIZER INC-2012121500

PATIENT
  Age: 69 Year
  Sex: Female

DRUGS (5)
  1. TOVIAZ [Suspect]
     Active Substance: FESOTERODINE FUMARATE
     Dosage: UNK
  2. TOVIAZ [Suspect]
     Active Substance: FESOTERODINE FUMARATE
     Dosage: 4 MG, 2X/DAY
     Route: 048
  3. TESSALON [Concomitant]
     Active Substance: BENZONATATE
     Indication: Cough
     Dosage: 100 MG, AS NEEDED (3 TIMES DAILY AS NEEDED)
     Route: 048
  4. NEURONTIN [Concomitant]
     Active Substance: GABAPENTIN
     Dosage: 1 TO 2 CAPSULES BY MOUTH EACH MORNING
     Route: 048
  5. NEURONTIN [Concomitant]
     Active Substance: GABAPENTIN
     Dosage: 300 MG AT NIGHT
     Route: 048

REACTIONS (2)
  - Erythema [Unknown]
  - Off label use [Unknown]
